FAERS Safety Report 11718545 (Version 1)
Quarter: 2015Q4

REPORT INFORMATION
  Report Type: Spontaneous
  Country: US (occurrence: US)
  Receive Date: 20151110
  Receipt Date: 20151110
  Transmission Date: 20160304
  Serious: Yes (Hospitalization, Other)
  Sender: FDA-Public Use
  Company Number: US-ACTAVIS-2015-23919

PATIENT
  Age: 64 Year
  Sex: Male

DRUGS (2)
  1. MORPHINE SULFATE (AELLC) [Suspect]
     Active Substance: MORPHINE SULFATE
     Indication: ARTHRALGIA
  2. MORPHINE SULFATE (AELLC) [Suspect]
     Active Substance: MORPHINE SULFATE
     Indication: BACK PAIN
     Dosage: UNK
     Route: 065

REACTIONS (1)
  - Impaired gastric emptying [Recovered/Resolved]
